FAERS Safety Report 8056995-0 (Version None)
Quarter: 2012Q1

REPORT INFORMATION
  Report Type: 
  Country: None (occurrence: None)
  Receive Date: 20120119
  Receipt Date: 20120113
  Transmission Date: 20120608
  Serious: Yes (Death, Hospitalization)
  Sender: FDA-Public Use
  Company Number: US-ACTELION-A-NJ2011-57167

PATIENT

DRUGS (6)
  1. REVATIO [Concomitant]
  2. IMDUR [Concomitant]
  3. COUMADIN [Concomitant]
  4. CALCIUM CHANNEL BLOCKERS [Concomitant]
  5. TRACLEER [Suspect]
     Dosage: UNK
     Route: 048
     Dates: start: 20110101
  6. TRACLEER [Suspect]
     Indication: PULMONARY ARTERIAL HYPERTENSION
     Dosage: UNK
     Route: 048
     Dates: start: 20100722, end: 20110101

REACTIONS (4)
  - PULMONARY ARTERIAL HYPERTENSION [None]
  - DRUG DOSE OMISSION [None]
  - FLUID RETENTION [None]
  - DEATH [None]
